FAERS Safety Report 6241198-2 (Version None)
Quarter: 2009Q2

REPORT INFORMATION
  Report Type: 
  Country: None (occurrence: None)
  Receive Date: 20090619
  Receipt Date: 20090619
  Transmission Date: 20091009
  Serious: Yes (Other)
  Sender: FDA-Public Use
  Company Number: None

PATIENT
  Age: 39 Year
  Sex: Male
  Weight: 70.3075 kg

DRUGS (1)
  1. ZICAM COLD REMEDY GEL SWABS 20 SWABS ZICAM [Suspect]
     Indication: NASOPHARYNGITIS
     Dosage: APPLICATION PER INSTRUCTIONS NASAL
     Route: 045

REACTIONS (2)
  - ANOSMIA [None]
  - DRUG HYPERSENSITIVITY [None]
